FAERS Safety Report 23342250 (Version 1)
Quarter: 2023Q4

REPORT INFORMATION
  Report Type: Spontaneous
  Country: CN (occurrence: CN)
  Receive Date: 20231227
  Receipt Date: 20231227
  Transmission Date: 20240110
  Serious: Yes (Hospitalization)
  Sender: FDA-Public Use
  Company Number: CN-ELI_LILLY_AND_COMPANY-CN202312012413

PATIENT
  Age: 56 Year
  Sex: Female
  Weight: 55 kg

DRUGS (1)
  1. ABEMACICLIB [Suspect]
     Active Substance: ABEMACICLIB
     Indication: Endocrine disorder
     Dosage: 100 MG, BID
     Route: 048
     Dates: start: 20230810, end: 20231212

REACTIONS (8)
  - Chest discomfort [Recovering/Resolving]
  - Pneumonia [Recovering/Resolving]
  - Axillary mass [Recovering/Resolving]
  - Metabolic alkalosis [Recovering/Resolving]
  - Osteoporosis [Recovering/Resolving]
  - Blood pressure decreased [Recovering/Resolving]
  - Interstitial lung disease [Recovering/Resolving]
  - Off label use [Recovering/Resolving]

NARRATIVE: CASE EVENT DATE: 20230810
